FAERS Safety Report 24105456 (Version 2)
Quarter: 2024Q3

REPORT INFORMATION
  Report Type: Spontaneous
  Country: US (occurrence: US)
  Receive Date: 20240717
  Receipt Date: 20240726
  Transmission Date: 20241017
  Serious: Yes (Death, Other)
  Sender: IOVANCE BIOTHERAPEUTICS
  Company Number: US-IOVANCE BIOTHERAPEUTICS, INC-2024IOV000040

PATIENT

DRUGS (4)
  1. AMTAGVI [Suspect]
     Active Substance: LIFILEUCEL
     Indication: Metastatic malignant melanoma
     Dosage: UNK
     Route: 042
     Dates: start: 20240604, end: 20240604
  2. ALDESLEUKIN [Suspect]
     Active Substance: ALDESLEUKIN
     Indication: Metastatic malignant melanoma
     Dosage: 2 DOSES
     Route: 042
     Dates: start: 20240604, end: 20240605
  3. CYCLOPHOSPHAMIDE [Suspect]
     Active Substance: CYCLOPHOSPHAMIDE
     Indication: Metastatic malignant melanoma
     Dosage: 600 MG/M2 X 3 DAYS
     Route: 042
     Dates: start: 20240531, end: 20240602
  4. FLUDARABINE [Suspect]
     Active Substance: FLUDARABINE PHOSPHATE
     Indication: Metastatic malignant melanoma
     Dosage: 30 MG/M2 X 4 DAYS
     Route: 042
     Dates: start: 20240531, end: 20240603

REACTIONS (9)
  - Metastases to meninges [Fatal]
  - Dyspnoea [Unknown]
  - Mental status changes [Recovered/Resolved]
  - Hemiparesis [Unknown]
  - Toxic encephalopathy [Unknown]
  - Confusional state [Unknown]
  - Unresponsive to stimuli [Unknown]
  - Pyrexia [Unknown]
  - Respiratory tract congestion [Unknown]

NARRATIVE: CASE EVENT DATE: 20240605
